FAERS Safety Report 7691669-7 (Version None)
Quarter: 2011Q3

REPORT INFORMATION
  Report Type: 
  Country: None (occurrence: None)
  Receive Date: 20110818
  Receipt Date: 20110816
  Transmission Date: 20111222
  Serious: Yes (Other)
  Sender: FDA-Public Use
  Company Number: US-PFIZER INC-2011188750

PATIENT
  Sex: Female
  Weight: 61.2 kg

DRUGS (4)
  1. AMLODIPINE [Concomitant]
     Indication: HYPERTENSION
     Dosage: UNK, 1X/DAY
  2. PREMARIN [Concomitant]
     Dosage: 0.625 MG, UNK
  3. PRISTIQ [Suspect]
     Indication: ANXIETY
     Dosage: 50 MG, 1X/DAY
     Route: 048
     Dates: start: 20110701
  4. XANAX [Concomitant]
     Dosage: UNK

REACTIONS (1)
  - GLAUCOMA [None]
